FAERS Safety Report 21150054 (Version 4)
Quarter: 2022Q3

REPORT INFORMATION
  Report Type: Report from Study
  Country: US (occurrence: US)
  Receive Date: 20220729
  Receipt Date: 20220914
  Transmission Date: 20221026
  Serious: No
  Sender: FDA-Public Use
  Company Number: US-NOVARTISTESTPH-NVSC2022US172074

PATIENT
  Sex: Female

DRUGS (1)
  1. XIIDRA [Suspect]
     Active Substance: LIFITEGRAST
     Indication: Dry eye
     Dosage: 5 %, BID
     Route: 047
     Dates: start: 20220614, end: 20220721

REACTIONS (5)
  - Eye discharge [Recovered/Resolved]
  - Dysgeusia [Recovered/Resolved]
  - Eye irritation [Recovered/Resolved]
  - Headache [Recovered/Resolved]
  - Product packaging quantity issue [Recovered/Resolved]
